FAERS Safety Report 9312511 (Version 1)
Quarter: 2013Q2

REPORT INFORMATION
  Report Type: Spontaneous
  Country: US (occurrence: US)
  Receive Date: 20130528
  Receipt Date: 20130528
  Transmission Date: 20140414
  Serious: Yes (Other)
  Sender: FDA-Public Use
  Company Number: US-BAYER-2013-063991

PATIENT
  Age: 0 None
  Sex: Male
  Weight: 3.96 kg

DRUGS (1)
  1. MIRENA [Suspect]
     Dosage: UNK, CONT
     Route: 064
     Dates: start: 201207, end: 20120731

REACTIONS (2)
  - Apgar score low [Recovered/Resolved]
  - Exposure during pregnancy [None]
